FAERS Safety Report 11740473 (Version 2)
Quarter: 2015Q4

REPORT INFORMATION
  Report Type: Spontaneous
  Country: US (occurrence: US)
  Receive Date: 20151110
  Receipt Date: 20151120
  Transmission Date: 20160304
  Serious: No
  Sender: FDA-Public Use
  Company Number: US-ELI_LILLY_AND_COMPANY-US201201000459

PATIENT
  Age: 82 Year
  Sex: Female
  Weight: 45.35 kg

DRUGS (8)
  1. FORTEO [Suspect]
     Active Substance: TERIPARATIDE
     Dosage: 20 UG, QD
     Route: 065
  2. CALCIUM [Concomitant]
     Active Substance: CALCIUM
     Dosage: 1 DF, UNK
  3. FORTEO [Suspect]
     Active Substance: TERIPARATIDE
     Dosage: 20 UG, QD
     Route: 065
  4. FORTEO [Suspect]
     Active Substance: TERIPARATIDE
     Dosage: 20 UG, QD
     Route: 065
     Dates: start: 20120529
  5. FORTEO [Suspect]
     Active Substance: TERIPARATIDE
     Dosage: 20 UG, QD
     Route: 065
  6. FORTEO [Suspect]
     Active Substance: TERIPARATIDE
     Indication: OSTEOPOROSIS
     Dosage: 20 UG, QD
     Route: 065
     Dates: start: 201112
  7. FORTEO [Suspect]
     Active Substance: TERIPARATIDE
     Dosage: 20 UG, QD
     Route: 065
  8. CALCIUM [Concomitant]
     Active Substance: CALCIUM
     Dosage: 2 DF, UNK

REACTIONS (28)
  - Asthenia [Unknown]
  - Constipation [Unknown]
  - Vertigo [Not Recovered/Not Resolved]
  - Hypersomnia [Unknown]
  - Blood calcium increased [Not Recovered/Not Resolved]
  - Abdominal discomfort [Unknown]
  - Erythema [Recovered/Resolved]
  - Pollakiuria [Unknown]
  - Fatigue [Unknown]
  - Decreased appetite [Unknown]
  - Dysgraphia [Unknown]
  - Tremor [Recovered/Resolved]
  - Decreased activity [Unknown]
  - Abnormal faeces [Unknown]
  - Alopecia [Recovered/Resolved]
  - Skin disorder [Recovered/Resolved]
  - Dizziness [Recovered/Resolved]
  - Nausea [Unknown]
  - Malaise [Unknown]
  - Sleep disorder due to a general medical condition [Unknown]
  - Weight decreased [Recovered/Resolved]
  - Hypersensitivity [Recovered/Resolved]
  - Eating disorder [Recovered/Resolved]
  - Feeling abnormal [Recovered/Resolved]
  - Discomfort [Unknown]
  - Gait disturbance [Recovered/Resolved]
  - Abdominal pain upper [Unknown]
  - Melanocytic naevus [Recovered/Resolved]

NARRATIVE: CASE EVENT DATE: 201112
